FAERS Safety Report 6909604-5 (Version None)
Quarter: 2010Q3

REPORT INFORMATION
  Report Type: 
  Country: None (occurrence: None)
  Receive Date: 20100805
  Receipt Date: 20100709
  Transmission Date: 20110219
  Serious: Yes (Other)
  Sender: FDA-Public Use
  Company Number: PHHY2010ZA45075

PATIENT
  Sex: Female

DRUGS (5)
  1. DIOVAN HCT [Suspect]
     Dosage: 160/12.5 MG
     Dates: end: 20100608
  2. DIOVAN HCT [Suspect]
     Dosage: UNK
     Dates: start: 20100611
  3. CRESTOR [Concomitant]
     Indication: BLOOD CHOLESTEROL INCREASED
     Dosage: 5 MG, UNK
  4. GLUCOPHAGE XR [Concomitant]
     Indication: DIABETES MELLITUS
  5. TAREG [Concomitant]

REACTIONS (6)
  - BLOOD CHOLESTEROL INCREASED [None]
  - DIABETES MELLITUS [None]
  - DRUG DOSE OMISSION [None]
  - HYPERSENSITIVITY [None]
  - HYPOTENSION [None]
  - KNEE ARTHROPLASTY [None]
